FAERS Safety Report 8317581-8 (Version None)
Quarter: 2012Q2

REPORT INFORMATION
  Report Type: 
  Country: None (occurrence: None)
  Receive Date: 20120427
  Receipt Date: 20120117
  Transmission Date: 20120825
  Serious: No
  Sender: FDA-Public Use
  Company Number: US-GLAXOSMITHKLINE-A0961793A

PATIENT
  Age: 26 Year
  Sex: Female

DRUGS (2)
  1. ONDANSETRON [Concomitant]
  2. ZOFRAN [Suspect]
     Indication: NAUSEA
     Dosage: 1ML SINGLE DOSE
     Route: 042
     Dates: start: 20120116, end: 20120116

REACTIONS (3)
  - SKIN DISCOLOURATION [None]
  - VASOCONSTRICTION [None]
  - RASH MACULAR [None]
